FAERS Safety Report 24652389 (Version 1)
Quarter: 2024Q4

REPORT INFORMATION
  Report Type: Report from Study
  Country: EG (occurrence: EG)
  Receive Date: 20241122
  Receipt Date: 20241122
  Transmission Date: 20250114
  Serious: Yes (Disabling, Other)
  Sender: NOVARTIS
  Company Number: EG-002147023-NVSC2024EG010953

PATIENT
  Sex: Female
  Weight: 60 kg

DRUGS (9)
  1. GILENYA [Suspect]
     Active Substance: FINGOLIMOD HYDROCHLORIDE
     Indication: Multiple sclerosis
     Dosage: 1 DOSAGE FORM, QD
     Route: 048
     Dates: start: 201902, end: 20230925
  2. GILENYA [Suspect]
     Active Substance: FINGOLIMOD HYDROCHLORIDE
     Dosage: 0.5 MG, QD
     Route: 048
  3. MAYZENT [Suspect]
     Active Substance: SIPONIMOD
     Indication: Multiple sclerosis
     Dosage: UNK
     Route: 065
  4. MAYZENT [Suspect]
     Active Substance: SIPONIMOD
     Dosage: 2 MG, QD
     Route: 048
     Dates: start: 20240307
  5. VITAMIN D NOS [Concomitant]
     Active Substance: CHOLECALCIFEROL\ERGOCALCIFEROL
     Indication: Vitamin supplementation
     Dosage: 1 DOSAGE FORM, QD
     Route: 065
     Dates: start: 201702
  6. BIOTIN [Concomitant]
     Active Substance: BIOTIN
     Indication: Vitamin supplementation
     Dosage: 1 DOSAGE FORM, QD
     Route: 065
     Dates: start: 201702
  7. .ALPHA.-LIPOIC ACID [Concomitant]
     Active Substance: .ALPHA.-LIPOIC ACID
     Indication: Medical diet
     Dosage: 1 DOSAGE FORM, QD
     Route: 065
     Dates: start: 201702
  8. VITAMIN B12 [Concomitant]
     Active Substance: CYANOCOBALAMIN
     Indication: Vitamin supplementation
     Dosage: 1 DOSAGE FORM, QD
     Route: 065
     Dates: start: 201702
  9. CONTROLOC [Concomitant]
     Active Substance: PANTOPRAZOLE SODIUM
     Indication: Gastrointestinal disorder
     Dosage: 1 DOSAGE FORM, PRN (ONCE IN WHILE)
     Route: 065
     Dates: start: 201702

REACTIONS (12)
  - Multiple sclerosis [Recovered/Resolved]
  - White blood cell count decreased [Recovering/Resolving]
  - Paraesthesia [Recovering/Resolving]
  - Hepatic enzyme increased [Recovered/Resolved]
  - Burning sensation [Recovering/Resolving]
  - Memory impairment [Recovering/Resolving]
  - Feeling cold [Recovering/Resolving]
  - Off label use [Recovered/Resolved]
  - Off label use [Not Recovered/Not Resolved]
  - Full blood count abnormal [Unknown]
  - Hypoaesthesia [Recovered/Resolved]
  - White blood cell count abnormal [Unknown]

NARRATIVE: CASE EVENT DATE: 20230101
